FAERS Safety Report 15449706 (Version 3)
Quarter: 2018Q4

REPORT INFORMATION
  Report Type: Spontaneous
  Country: US (occurrence: US)
  Receive Date: 20181001
  Receipt Date: 20181115
  Transmission Date: 20190204
  Serious: Yes (Hospitalization)
  Sender: FDA-Public Use
  Company Number: US-ASTRAZENECA-2018SF24282

PATIENT
  Age: 762 Month
  Sex: Male
  Weight: 117.9 kg

DRUGS (3)
  1. TRESIBA [Concomitant]
     Active Substance: INSULIN DEGLUDEC
     Indication: TYPE 2 DIABETES MELLITUS
     Dosage: AT NIGHT
     Route: 058
  2. BYDUREON BCISE [Suspect]
     Active Substance: EXENATIDE
     Indication: TYPE 2 DIABETES MELLITUS
     Route: 058
     Dates: start: 20180923
  3. BYDUREON [Suspect]
     Active Substance: EXENATIDE
     Indication: TYPE 2 DIABETES MELLITUS
     Dosage: UNKNOWN
     Route: 058
     Dates: end: 201809

REACTIONS (9)
  - Product use issue [Unknown]
  - Device occlusion [Unknown]
  - Coronary artery occlusion [Unknown]
  - Anxiety [Unknown]
  - Injection site mass [Not Recovered/Not Resolved]
  - Heart valve incompetence [Unknown]
  - Arterial disorder [Unknown]
  - Glycosylated haemoglobin increased [Recovered/Resolved]
  - Fatigue [Unknown]

NARRATIVE: CASE EVENT DATE: 201602
